FAERS Safety Report 9961782 (Version 1)
Quarter: 2014Q1

REPORT INFORMATION
  Report Type: Spontaneous
  Country: US (occurrence: None)
  Receive Date: 20140304
  Receipt Date: 20140304
  Transmission Date: 20141002
  Serious: Yes (Hospitalization)
  Sender: FDA-Public Use
  Company Number: None

PATIENT
  Age: 65 Year
  Sex: Male
  Weight: 85.1 kg

DRUGS (2)
  1. IBUPROFEN [Suspect]
     Indication: PAIN
     Dosage: 2 TABS
  2. IBUPROFEN [Suspect]
     Indication: INFLAMMATION
     Dosage: 2 TABS

REACTIONS (2)
  - Haemorrhage [None]
  - Gastrointestinal haemorrhage [None]
